FAERS Safety Report 16099177 (Version 1)
Quarter: 2019Q1

REPORT INFORMATION
  Report Type: Spontaneous
  Country: US (occurrence: US)
  Receive Date: 20190321
  Receipt Date: 20190321
  Transmission Date: 20190418
  Serious: Yes (Other)
  Sender: FDA-Public Use
  Company Number: US-ROCHE-2284588

PATIENT
  Age: 63 Year
  Sex: Female
  Weight: 71.73 kg

DRUGS (3)
  1. XOLAIR [Suspect]
     Active Substance: OMALIZUMAB
     Indication: URTICARIA
  2. GABAPENTIN. [Concomitant]
     Active Substance: GABAPENTIN
     Dosage: ONGOING: YES
     Route: 065
     Dates: start: 2008
  3. XOLAIR [Suspect]
     Active Substance: OMALIZUMAB
     Indication: VASCULITIS
     Dosage: SHOT IN THE ARM ;ONGOING: UNKNOWN
     Route: 058
     Dates: start: 201902

REACTIONS (10)
  - Off label use [Unknown]
  - Rash [Not Recovered/Not Resolved]
  - Seizure [Unknown]
  - Muscle spasms [Not Recovered/Not Resolved]
  - Urticaria [Not Recovered/Not Resolved]
  - Tremor [Not Recovered/Not Resolved]
  - Malaise [Unknown]
  - Pain [Not Recovered/Not Resolved]
  - Intentional product use issue [Unknown]
  - Bone density decreased [Unknown]

NARRATIVE: CASE EVENT DATE: 201902
